FAERS Safety Report 9049342 (Version 1)
Quarter: 2013Q1

REPORT INFORMATION
  Report Type: Spontaneous
  Country: CA (occurrence: CA)
  Receive Date: 20130205
  Receipt Date: 20130205
  Transmission Date: 20140127
  Serious: Yes (Other)
  Sender: FDA-Public Use
  Company Number: CA-ELI_LILLY_AND_COMPANY-CA201301009048

PATIENT
  Age: 87 Year
  Sex: Female

DRUGS (6)
  1. FORTEO [Suspect]
     Indication: OSTEOPOROSIS
     Dosage: 20 UG, QD
     Route: 058
     Dates: start: 20110831, end: 201301
  2. LIPITOR [Concomitant]
     Dosage: 10 MG, UNKNOWN
     Route: 065
  3. PARIET [Concomitant]
     Dosage: UNK, BID
     Route: 065
  4. CALCITONIN [Concomitant]
     Dosage: UNK, UNKNOWN
     Route: 065
  5. MORPHINE [Concomitant]
     Dosage: 25 UG, UNKNOWN
     Route: 065
  6. DILAUDID [Concomitant]
     Dosage: UNK, PRN
     Route: 065

REACTIONS (1)
  - Vascular neoplasm [Not Recovered/Not Resolved]
